FAERS Safety Report 5947296-2 (Version None)
Quarter: 2008Q4

REPORT INFORMATION
  Report Type: 
  Country: None (occurrence: None)
  Receive Date: 20081110
  Receipt Date: 20081031
  Transmission Date: 20090506
  Serious: Yes (Other)
  Sender: FDA-Public Use
  Company Number: US-KINGPHARMUSA00001-K200801256

PATIENT

DRUGS (1)
  1. ALTACE [Suspect]
     Dosage: UNK

REACTIONS (1)
  - OESOPHAGEAL STENOSIS [None]
